FAERS Safety Report 8433216 (Version 3)
Quarter: 2012Q4

REPORT INFORMATION
  Report Type: 
  Country: JP (occurrence: JP)
  Receive Date: 20120229
  Receipt Date: 20121120
  Transmission Date: 20130627
  Serious: Yes (Hospitalization, Other)
  Sender: FDA-Public Use
  Company Number: JP-JNJFOC-20120205420

PATIENT
  Sex: Male
  Weight: 45 kg

DRUGS (20)
  1. DUROTEP MT [Suspect]
     Indication: CANCER PAIN
     Route: 062
     Dates: start: 20110610, end: 20110616
  2. DUROTEP MT [Suspect]
     Indication: CANCER PAIN
     Dosage: 2 x 12.5 ug/ hr patch
     Route: 062
     Dates: start: 20110616, end: 20110628
  3. DUROTEP MT [Suspect]
     Indication: CANCER PAIN
     Route: 062
     Dates: start: 20110628, end: 20110701
  4. RIFAMPICIN [Interacting]
     Indication: TUBERCULOSIS
     Route: 048
     Dates: start: 20110625
  5. CELECOX [Concomitant]
     Indication: CANCER PAIN
     Route: 048
     Dates: start: 20110610
  6. ISCOTIN [Concomitant]
     Indication: TUBERCULOSIS
     Route: 048
     Dates: start: 20110625
  7. EBUTOL [Concomitant]
     Indication: TUBERCULOSIS
     Route: 048
     Dates: start: 20110625
  8. REBAMIPIDE [Concomitant]
     Route: 048
  9. PYRIDOXAL CALCIUM PHOSPHATE [Concomitant]
     Route: 048
  10. AMLODIPINE [Concomitant]
     Route: 048
  11. TAKEPRON [Concomitant]
     Route: 048
  12. MUCOSOLVAN [Concomitant]
     Route: 048
  13. THEODUR [Concomitant]
     Route: 048
  14. ROHYPNOL [Concomitant]
     Route: 048
  15. MAGNESIUM OXIDE [Concomitant]
     Route: 048
  16. NOVAMIN [Concomitant]
     Route: 048
     Dates: start: 20110701
  17. ZYRTEC [Concomitant]
     Route: 048
     Dates: start: 20110703
  18. OPSO [Concomitant]
     Indication: CANCER PAIN
     Dosage: 10mg two or three times daily
     Route: 048
     Dates: start: 20110628
  19. ISONIAZID [Concomitant]
     Indication: TUBERCULOSIS
     Route: 065
     Dates: start: 20110625
  20. ETHAMBUTOL [Concomitant]
     Indication: TUBERCULOSIS
     Route: 048
     Dates: start: 20110625, end: 20110824

REACTIONS (2)
  - Pain [Recovered/Resolved]
  - Drug interaction [Recovered/Resolved]
